FAERS Safety Report 5473924-4 (Version None)
Quarter: 2007Q4

REPORT INFORMATION
  Report Type: 
  Country: None (occurrence: None)
  Receive Date: 20071001
  Receipt Date: 20041004
  Transmission Date: 20080405
  Serious: Yes (Other)
  Sender: FDA-Public Use
  Company Number: US-PFIZER INC-2007080507

PATIENT
  Sex: Female

DRUGS (2)
  1. XANAX [Suspect]
  2. COCAINE [Suspect]

REACTIONS (2)
  - DRUG ABUSER [None]
  - DRUG DEPENDENCE [None]
